FAERS Safety Report 5386436-3 (Version None)
Quarter: 2007Q3

REPORT INFORMATION
  Report Type: 
  Country: None (occurrence: None)
  Receive Date: 20070713
  Receipt Date: 20070706
  Transmission Date: 20080115
  Serious: Yes (Hospitalization, Other)
  Sender: FDA-Public Use
  Company Number: US-BAYER-200616645BWH

PATIENT
  Age: 77 Year
  Sex: Male

DRUGS (17)
  1. NEXAVAR [Suspect]
     Indication: RENAL CELL CARCINOMA STAGE UNSPECIFIED
     Dosage: TOTAL DAILY DOSE: 800 MG  UNIT DOSE: 200 MG
     Route: 048
     Dates: start: 20070612
  2. NEXAVAR [Suspect]
     Dosage: TOTAL DAILY DOSE: 800 MG  UNIT DOSE: 200 MG
     Route: 048
     Dates: start: 20070405, end: 20070426
  3. NEXAVAR [Suspect]
     Dosage: TOTAL DAILY DOSE: 800 MG  UNIT DOSE: 200 MG
     Route: 048
     Dates: start: 20070222, end: 20070311
  4. NEXAVAR [Suspect]
     Dosage: TOTAL DAILY DOSE: 800 MG  UNIT DOSE: 200 MG
     Route: 048
     Dates: start: 20070108, end: 20070122
  5. NEXAVAR [Suspect]
     Dosage: TOTAL DAILY DOSE: 800 MG  UNIT DOSE: 200 MG
     Route: 048
     Dates: start: 20061002, end: 20061101
  6. NEXAVAR [Suspect]
     Dosage: TOTAL DAILY DOSE: 800 MG  UNIT DOSE: 200 MG
     Route: 048
     Dates: start: 20061112, end: 20061215
  7. LASIX [Concomitant]
  8. INDERAL [Concomitant]
     Dosage: TOTAL DAILY DOSE: 20 MG
  9. VITAMIN E [Concomitant]
  10. ASCORBIC ACID [Concomitant]
  11. LANOXIN [Concomitant]
  12. NIACIN [Concomitant]
  13. ALTACE [Concomitant]
  14. ATARAX [Concomitant]
  15. FOLBEE [Concomitant]
  16. MAG-TAB [Concomitant]
  17. ASPIRIN [Concomitant]
     Route: 048

REACTIONS (18)
  - ANAEMIA [None]
  - BLOOD PRESSURE INCREASED [None]
  - CARDIAC DISORDER [None]
  - CONSTIPATION [None]
  - DECREASED APPETITE [None]
  - DIARRHOEA [None]
  - DIZZINESS [None]
  - FATIGUE [None]
  - FLATULENCE [None]
  - FLUID RETENTION [None]
  - HICCUPS [None]
  - MYALGIA [None]
  - NAUSEA [None]
  - STOMATITIS [None]
  - THERAPEUTIC EMBOLISATION [None]
  - URINE ODOUR ABNORMAL [None]
  - URINE OUTPUT INCREASED [None]
  - WEIGHT DECREASED [None]
